FAERS Safety Report 21264965 (Version 2)
Quarter: 2022Q3

REPORT INFORMATION
  Report Type: Spontaneous
  Country: IT (occurrence: IT)
  Receive Date: 20220829
  Receipt Date: 20220906
  Transmission Date: 20221027
  Serious: Yes (Hospitalization, Other)
  Sender: FDA-Public Use
  Company Number: IT-BoehringerIngelheim-2022-BI-189344

PATIENT
  Age: 90 Year
  Sex: Male

DRUGS (1)
  1. PRADAXA [Suspect]
     Active Substance: DABIGATRAN ETEXILATE MESYLATE
     Indication: Product used for unknown indication

REACTIONS (2)
  - Cardiac pacemaker insertion [Unknown]
  - Pneumothorax [Recovered/Resolved with Sequelae]

NARRATIVE: CASE EVENT DATE: 20220817
